FAERS Safety Report 7037533-8 (Version None)
Quarter: 2010Q4

REPORT INFORMATION
  Report Type: 
  Country: None (occurrence: None)
  Receive Date: 20101011
  Receipt Date: 20101004
  Transmission Date: 20110411
  Serious: Yes (Death, Other)
  Sender: FDA-Public Use
  Company Number: TR-CELGENEUS-161-20785-10100269

PATIENT

DRUGS (6)
  1. THALIDOMIDE [Suspect]
     Indication: MULTIPLE MYELOMA
     Route: 048
  2. MELPHALAN HYDROCHLORIDE [Suspect]
     Indication: MULTIPLE MYELOMA
     Route: 048
  3. PREDNISONE [Suspect]
     Indication: MULTIPLE MYELOMA
     Route: 048
  4. LMWH [Concomitant]
     Indication: PROPHYLAXIS
     Route: 065
  5. WARFARIN SODIUM [Concomitant]
     Indication: PROPHYLAXIS
     Route: 065
  6. ASPIRIN [Concomitant]
     Indication: PROPHYLAXIS
     Route: 065

REACTIONS (11)
  - CARDIAC DISORDER [None]
  - CONSTIPATION [None]
  - DEATH [None]
  - HYPOGAMMAGLOBULINAEMIA [None]
  - INFECTION [None]
  - LYMPHOPENIA [None]
  - NEUROPATHY PERIPHERAL [None]
  - NEUTROPENIA [None]
  - PULMONARY EMBOLISM [None]
  - SKIN REACTION [None]
  - VENOUS THROMBOSIS [None]
